FAERS Safety Report 5154686-7 (Version None)
Quarter: 2006Q4

REPORT INFORMATION
  Report Type: 
  Country: None (occurrence: None)
  Receive Date: 20061113
  Receipt Date: 20061026
  Transmission Date: 20070319
  Serious: Yes (Other)
  Sender: FDA-Public Use
  Company Number: 200610AGG00505

PATIENT
  Age: 46 Year
  Sex: Male

DRUGS (4)
  1. AGGRASTAT [Suspect]
     Indication: CARDIAC ENZYMES INCREASED
  2. ASPIRIN [Concomitant]
  3. HEPARIN LOW MOLECULAR WEIGHT [Concomitant]
  4. INSULIN [Concomitant]

REACTIONS (3)
  - BLOOD GLUCOSE INCREASED [None]
  - CORONARY ARTERY STENOSIS [None]
  - MYOCARDIAL INFARCTION [None]
